FAERS Safety Report 5412931-4 (Version None)
Quarter: 2007Q3

REPORT INFORMATION
  Report Type: 
  Country: None (occurrence: None)
  Receive Date: 20070813
  Receipt Date: 20070801
  Transmission Date: 20080115
  Serious: Yes (Other)
  Sender: FDA-Public Use
  Company Number: IT-GENENTECH-240990

PATIENT
  Sex: Female
  Weight: 58 kg

DRUGS (1)
  1. RITUXAN [Suspect]
     Indication: B-CELL LYMPHOMA
     Dosage: 375 MG, UNK
     Route: 042
     Dates: start: 20050920

REACTIONS (1)
  - MEDICATION ERROR [None]
